FAERS Safety Report 9959302 (Version 1)
Quarter: 2014Q1

REPORT INFORMATION
  Report Type: Spontaneous
  Country: GB (occurrence: None)
  Receive Date: 20140228
  Receipt Date: 20140228
  Transmission Date: 20141002
  Serious: Yes (Hospitalization)
  Sender: FDA-Public Use
  Company Number: 2203861

PATIENT
  Age: 60 Year
  Sex: Female
  Weight: 65 kg

DRUGS (4)
  1. IRINOTECAN HYDROCHLORIDE [Suspect]
     Indication: PRODUCT USED FOR UNKNOWN INDICATION
     Dosage: INTRAVEANOUS (NOT OTHERWISE SPECIFIED)
     Route: 042
     Dates: start: 20131003
  2. PEGFILGRASTIM [Suspect]
     Indication: CHEMOTHERAPY
     Dosage: 2/52, INTRAVENOUS (NOT OTHERWISE SPECIFIED)
     Route: 042
     Dates: start: 20131003, end: 20131010
  3. FLUROURACIL [Concomitant]
  4. FOLINICACID [Concomitant]

REACTIONS (3)
  - Neutropenic sepsis [None]
  - Haemoglobin increased [None]
  - Febrile neutropenia [None]
